FAERS Safety Report 5307967-8 (Version None)
Quarter: 2007Q2

REPORT INFORMATION
  Report Type: 
  Country: None (occurrence: None)
  Receive Date: 20070426
  Receipt Date: 20070413
  Transmission Date: 20071010
  Serious: Yes (Death, Hospitalization)
  Sender: FDA-Public Use
  Company Number: 2007CG00512

PATIENT
  Age: 71 Year
  Sex: Female

DRUGS (24)
  1. NEXIUM [Suspect]
     Route: 048
     Dates: start: 20061007, end: 20061011
  2. NEURONTIN [Suspect]
     Indication: AUTONOMIC NEUROPATHY
     Route: 048
     Dates: end: 20061101
  3. MINISINTROM [Suspect]
     Route: 048
     Dates: end: 20061031
  4. LEVOTHYROXINE SODIUM [Suspect]
     Route: 048
     Dates: end: 20061102
  5. INIPOMP [Suspect]
     Route: 048
     Dates: end: 20060908
  6. FLUDARA [Concomitant]
     Indication: LYMPHOMA
     Dates: end: 20060628
  7. ENDOXAN [Concomitant]
     Indication: LYMPHOMA
     Dates: end: 20060628
  8. EPREX [Concomitant]
     Dates: start: 20060804, end: 20060816
  9. BACTRIM [Concomitant]
     Dates: end: 20060904
  10. LODALES [Concomitant]
     Dates: end: 20060908
  11. COZAAR [Concomitant]
     Dates: end: 20060920
  12. VALACYCLOVIR HCL [Concomitant]
     Dates: end: 20060920
  13. ORGAMETRIL [Concomitant]
     Dates: end: 20060910
  14. GAVISCON [Concomitant]
     Dates: end: 20060911
  15. CLAFORAN [Concomitant]
     Indication: ESCHERICHIA SEPSIS
     Dates: start: 20061001, end: 20061004
  16. AMIKLIN [Concomitant]
     Indication: ESCHERICHIA SEPSIS
     Dates: start: 20061002, end: 20061004
  17. GENTALLINE [Concomitant]
     Indication: ESCHERICHIA SEPSIS
     Dates: start: 20061002, end: 20061006
  18. ANTIHISTAMINES [Concomitant]
     Dates: start: 20060816
  19. LOCAL CORTICOSTEROID [Concomitant]
     Route: 061
     Dates: start: 20060816
  20. GALIEN'S CERATE [Concomitant]
     Route: 061
     Dates: start: 20060816
  21. OFLOCET [Concomitant]
     Indication: ESCHERICHIA SEPSIS
     Route: 048
     Dates: start: 20061004, end: 20061014
  22. ARANESP [Concomitant]
     Indication: ANAEMIA
     Route: 058
  23. LASIX [Concomitant]
     Indication: CARDIAC FAILURE
     Route: 048
     Dates: start: 20060915, end: 20061013
  24. DIFFU-K [Concomitant]
     Dates: start: 20060101

REACTIONS (5)
  - ECZEMA [None]
  - EOSINOPHILIA [None]
  - FACE OEDEMA [None]
  - RENAL FAILURE ACUTE [None]
  - TOXIC EPIDERMAL NECROLYSIS [None]
